FAERS Safety Report 4765672-0 (Version None)
Quarter: 2005Q3

REPORT INFORMATION
  Report Type: 
  Country: None (occurrence: None)
  Receive Date: 20050906
  Receipt Date: 20050823
  Transmission Date: 20060218
  Serious: Yes (Life-Threatening)
  Sender: FDA-Public Use
  Company Number: 2005120405

PATIENT
  Sex: Female

DRUGS (4)
  1. DIFLUCAN [Suspect]
     Indication: ILL-DEFINED DISORDER
     Dosage: (50 MG), ORAL
     Route: 048
     Dates: start: 20050516, end: 20050607
  2. NAXOGIN (NIMORAZOLE) [Suspect]
     Indication: LARYNGEAL CANCER
     Dosage: 1500 (500 MG, INTERVAL: DAILY), ORAL
     Route: 048
     Dates: start: 20040504, end: 20050610
  3. PHENOPROCOUMON (PHENPROCOUMON) [Suspect]
     Indication: ATRIAL FIBRILLATION
     Dosage: (1.5 MG, 3 TIME INTERVAL: WEEKLY), ORAL
     Route: 048
     Dates: start: 19880101
  4. DICLOFENAC SODIUM [Suspect]
     Indication: ILL-DEFINED DISORDER
     Dosage: (50 MG), ORAL
     Route: 048
     Dates: start: 20050506, end: 20050522

REACTIONS (5)
  - DRUG INTERACTION [None]
  - GASTROINTESTINAL HAEMORRHAGE [None]
  - HAEMATEMESIS [None]
  - HAEMOGLOBIN DECREASED [None]
  - INTERNATIONAL NORMALISED RATIO INCREASED [None]
